FAERS Safety Report 9163243 (Version 2)
Quarter: 2013Q1

REPORT INFORMATION
  Report Type: Spontaneous
  Country: US (occurrence: US)
  Receive Date: 20130314
  Receipt Date: 20130325
  Transmission Date: 20140127
  Serious: Yes (Other)
  Sender: FDA-Public Use
  Company Number: US-JNJFOC-20130305460

PATIENT
  Age: 50 Year
  Sex: Female
  Weight: 74.84 kg

DRUGS (5)
  1. ZYRTEC IR [Suspect]
     Indication: FOOD ALLERGY
     Dosage: SINCE UNSPECIFIED DATE FROM LATE 90S
     Route: 048
  2. ZYRTEC IR [Suspect]
     Indication: SEASONAL ALLERGY
     Dosage: SINCE UNSPECIFIED DATE FROM LATE 90S
     Route: 048
  3. TYLENOL [Concomitant]
     Indication: HEADACHE
     Route: 065
  4. VITAMIN [Concomitant]
     Route: 065
  5. LAXATIVE [Concomitant]
     Route: 065

REACTIONS (2)
  - Glaucoma [Not Recovered/Not Resolved]
  - Off label use [Unknown]
